FAERS Safety Report 5072268-2 (Version None)
Quarter: 2006Q3

REPORT INFORMATION
  Report Type: 
  Country: None (occurrence: None)
  Receive Date: 20060801
  Receipt Date: 20060726
  Transmission Date: 20061208
  Serious: Yes (Other)
  Sender: FDA-Public Use
  Company Number: 146805USA

PATIENT
  Age: 80 Year
  Sex: Female

DRUGS (10)
  1. COPAXONE [Suspect]
     Indication: MULTIPLE SCLEROSIS
     Dates: start: 20060401
  2. AMANTADINE HCL [Concomitant]
  3. COUMADIN [Concomitant]
  4. SYNTHROID [Concomitant]
  5. PREDNISONE TAB [Concomitant]
  6. FOSAMAX [Concomitant]
  7. CEPHALEXIN [Concomitant]
  8. PREMARIN [Concomitant]
  9. QUININE SULFATE [Concomitant]
  10. LORAZEPAM [Concomitant]

REACTIONS (1)
  - HYPONATRAEMIA [None]
